FAERS Safety Report 11256039 (Version 1)
Quarter: 2015Q3

REPORT INFORMATION
  Report Type: Spontaneous
  Country: GB (occurrence: GB)
  Receive Date: 20150709
  Receipt Date: 20150709
  Transmission Date: 20151125
  Serious: Yes (Disabling, Other)
  Sender: FDA-Public Use
  Company Number: GB-BAYER-2015-368630

PATIENT
  Age: 76 Year
  Sex: Female
  Weight: 83.91 kg

DRUGS (3)
  1. AVELOX [Suspect]
     Active Substance: MOXIFLOXACIN HYDROCHLORIDE
     Indication: PNEUMONIA
     Dosage: UNK
     Route: 048
     Dates: start: 20130323, end: 20130327
  2. COAPROVEL [Concomitant]
     Active Substance: HYDROCHLOROTHIAZIDE\IRBESARTAN
  3. VOLTAROL [DICLOFENAC POTASSIUM] [Concomitant]

REACTIONS (3)
  - Neuropathy peripheral [Not Recovered/Not Resolved]
  - Bulbar poliomyelitis [Not Recovered/Not Resolved]
  - Balance disorder [Not Recovered/Not Resolved]

NARRATIVE: CASE EVENT DATE: 20130330
